FAERS Safety Report 17035352 (Version 1)
Quarter: 2019Q4

REPORT INFORMATION
  Report Type: Spontaneous
  Country: TR (occurrence: TR)
  Receive Date: 20191115
  Receipt Date: 20191115
  Transmission Date: 20200122
  Serious: Yes (Hospitalization, Other)
  Sender: FDA-Public Use
  Company Number: TR-ASTELLAS-2019US043783

PATIENT
  Age: 67 Year
  Sex: Male

DRUGS (11)
  1. ZOLEDRONIC ACID. [Concomitant]
     Active Substance: ZOLEDRONIC ACID
     Dosage: UNK UNK, UNKNOWN FREQ.
     Route: 065
  2. XTANDI [Suspect]
     Active Substance: ENZALUTAMIDE
     Indication: HORMONE-REFRACTORY PROSTATE CANCER
     Dosage: 160 MG (1X4 CAPSULES), ONCE DAILY
     Route: 048
     Dates: start: 201709
  3. DOCETAXEL. [Suspect]
     Active Substance: DOCETAXEL
     Indication: HORMONE-REFRACTORY PROSTATE CANCER
     Dosage: UNK UNK, UNKNOWN FREQ.
     Route: 065
     Dates: start: 20170201
  4. CONTRAMAL [Concomitant]
     Active Substance: TRAMADOL HYDROCHLORIDE
     Indication: PRODUCT USED FOR UNKNOWN INDICATION
     Dosage: UNK UNK, UNKNOWN FREQ.
     Route: 065
  5. ELIGARD [Suspect]
     Active Substance: LEUPROLIDE ACETATE
     Indication: HORMONE-REFRACTORY PROSTATE CANCER
     Dosage: 22.5 MG, EVERY 3 MONTHS
     Route: 058
     Dates: start: 201503
  6. ZOLEDRONIC ACID. [Concomitant]
     Active Substance: ZOLEDRONIC ACID
     Dosage: UNK UNK, UNKNOWN FREQ.
     Route: 065
     Dates: start: 20170201
  7. COVERSYL                           /00790702/ [Concomitant]
     Active Substance: PERINDOPRIL
     Indication: PRODUCT USED FOR UNKNOWN INDICATION
     Dosage: UNK UNK, UNKNOWN FREQ.
     Route: 065
  8. BELOC                              /00030002/ [Concomitant]
     Active Substance: PROPRANOLOL HYDROCHLORIDE
     Indication: PRODUCT USED FOR UNKNOWN INDICATION
     Dosage: UNK UNK, UNKNOWN FREQ.
     Route: 065
  9. PREDNISOLONE. [Concomitant]
     Active Substance: PREDNISOLONE
     Indication: HORMONE-REFRACTORY PROSTATE CANCER
     Dosage: UNK UNK, UNKNOWN FREQ.
     Route: 065
     Dates: start: 20170201
  10. BICALUTAMIDE. [Concomitant]
     Active Substance: BICALUTAMIDE
     Indication: PRODUCT USED FOR UNKNOWN INDICATION
     Route: 065
     Dates: start: 201503
  11. ZOLEDRONIC ACID. [Concomitant]
     Active Substance: ZOLEDRONIC ACID
     Indication: HORMONE-REFRACTORY PROSTATE CANCER
     Dosage: UNK UNK, UNKNOWN FREQ.
     Route: 065
     Dates: start: 201503

REACTIONS (18)
  - Pneumonia fungal [Unknown]
  - Bone pain [Unknown]
  - Prostatic specific antigen increased [Unknown]
  - Neuropathy peripheral [Not Recovered/Not Resolved]
  - Metastasis [Unknown]
  - Jaw disorder [Unknown]
  - Gait disturbance [Unknown]
  - Metastases to bone [Unknown]
  - Decreased appetite [Unknown]
  - Back pain [Unknown]
  - Malignant neoplasm progression [Unknown]
  - Muscular weakness [Unknown]
  - Mouth injury [Unknown]
  - Hypoaesthesia [Unknown]
  - Pain in jaw [Unknown]
  - Swelling face [Unknown]
  - Fungal infection [Unknown]
  - Fatigue [Unknown]

NARRATIVE: CASE EVENT DATE: 20170103
